FAERS Safety Report 21537458 (Version 2)
Quarter: 2022Q4

REPORT INFORMATION
  Report Type: Spontaneous
  Country: BR (occurrence: BR)
  Receive Date: 20221101
  Receipt Date: 20221106
  Transmission Date: 20230113
  Serious: Yes (Hospitalization, Other)
  Sender: FDA-Public Use
  Company Number: BR-009507513-2210BRA010219

PATIENT
  Age: 76 Year
  Sex: Female
  Weight: 55 kg

DRUGS (12)
  1. KEYTRUDA [Suspect]
     Active Substance: PEMBROLIZUMAB
     Indication: Lung carcinoma cell type unspecified stage 0
     Dosage: 200 MILLIGRAM
     Route: 042
  2. KEYTRUDA [Suspect]
     Active Substance: PEMBROLIZUMAB
     Dosage: 200 MILLIGRAM
     Route: 042
  3. CARBOPLATIN [Suspect]
     Active Substance: CARBOPLATIN
     Indication: Lung carcinoma cell type unspecified stage 0
     Dosage: 399.33 MILLIGRAM
     Route: 042
  4. CARBOPLATIN [Suspect]
     Active Substance: CARBOPLATIN
     Dosage: 399.33 MILLIGRAM
     Route: 042
  5. PACLITAXEL [Suspect]
     Active Substance: PACLITAXEL
     Indication: Lung carcinoma cell type unspecified stage 0
     Dosage: 310.6 MILLIGRAM
     Route: 042
  6. AMLODIPINE\VALSARTAN [Concomitant]
     Active Substance: AMLODIPINE\VALSARTAN
     Dosage: 160MG (+)5MG
  7. OLODATEROL HYDROCHLORIDE\TIOTROPIUM BROMIDE MONOHYDRATE [Concomitant]
     Active Substance: OLODATEROL HYDROCHLORIDE\TIOTROPIUM BROMIDE MONOHYDRATE
     Dosage: 2.5MCG
  8. FENOTEROL HYDROBROMIDE\IPRATROPIUM BROMIDE [Concomitant]
     Active Substance: FENOTEROL HYDROBROMIDE\IPRATROPIUM BROMIDE
     Dosage: 0.02(+)0.05MG
  9. METFORMIN HYDROCHLORIDE [Concomitant]
     Active Substance: METFORMIN HYDROCHLORIDE
     Dosage: 500MG
  10. CILOSTAZOL [Concomitant]
     Active Substance: CILOSTAZOL
     Dosage: 50MG
  11. FERROUS BISGLYCINATE [Concomitant]
     Active Substance: FERROUS BISGLYCINATE
     Dosage: 150MG
  12. NIFEDIPINE [Concomitant]
     Active Substance: NIFEDIPINE
     Dosage: 20MG ONCE DAILY

REACTIONS (3)
  - Oxygen saturation decreased [Unknown]
  - Abdominal distension [Unknown]
  - Respiratory distress [Unknown]

NARRATIVE: CASE EVENT DATE: 20221021
